FAERS Safety Report 17433068 (Version 2)
Quarter: 2020Q1

REPORT INFORMATION
  Report Type: Report from Study
  Country: None (occurrence: US)
  Receive Date: 20200219
  Receipt Date: 20200225
  Transmission Date: 20200409
  Serious: Yes (Hospitalization)
  Sender: FDA-Public Use
  Company Number: US-ABBVIE-20K-163-3275784-00

PATIENT
  Sex: Female

DRUGS (2)
  1. HUMIRA [Suspect]
     Active Substance: ADALIMUMAB
     Indication: RHEUMATOID ARTHRITIS
     Dosage: CITRATE FREE
     Route: 058
     Dates: start: 20190322, end: 202002
  2. HUMIRA [Suspect]
     Active Substance: ADALIMUMAB
     Dosage: CITRATE FREE
     Route: 058
     Dates: start: 202002

REACTIONS (9)
  - Malaise [Unknown]
  - Hyperhidrosis [Unknown]
  - Vomiting [Recovering/Resolving]
  - Respiratory tract congestion [Recovering/Resolving]
  - Cystitis [Recovering/Resolving]
  - Asthenia [Unknown]
  - Hypophagia [Recovering/Resolving]
  - Dyspepsia [Unknown]
  - Adverse drug reaction [Recovering/Resolving]

NARRATIVE: CASE EVENT DATE: 2020
